FAERS Safety Report 7502184-5 (Version None)
Quarter: 2011Q1

REPORT INFORMATION
  Report Type: 
  Country: None (occurrence: None)
  Receive Date: 20110318
  Receipt Date: 20101007
  Transmission Date: 20110831
  Serious: Yes (Other)
  Sender: FDA-Public Use
  Company Number: 2010SP054002

PATIENT
  Age: 50 Year
  Sex: Male

DRUGS (1)
  1. PEG-INTRON [Suspect]
     Indication: HEPATITIS C
     Dates: start: 20100801, end: 20101001

REACTIONS (2)
  - PSYCHOTIC DISORDER [None]
  - SELF-INJURIOUS IDEATION [None]
